FAERS Safety Report 4852673-7 (Version None)
Quarter: 2005Q4

REPORT INFORMATION
  Report Type: 
  Country: None (occurrence: None)
  Receive Date: 20051213
  Receipt Date: 20050419
  Transmission Date: 20060501
  Serious: Yes (Hospitalization, Other)
  Sender: FDA-Public Use
  Company Number: US-MERCK-0504USA03796

PATIENT
  Age: 69 Year
  Sex: Male
  Weight: 91 kg

DRUGS (4)
  1. VIOXX [Suspect]
     Indication: ARTHRITIS
     Route: 048
     Dates: end: 20040901
  2. CENTRUM SILVER [Concomitant]
     Route: 065
  3. ASPIRIN [Concomitant]
     Route: 065
  4. TYLENOL [Concomitant]
     Route: 065

REACTIONS (20)
  - AORTIC ANEURYSM [None]
  - AORTIC DISORDER [None]
  - ARTERIOSCLEROSIS [None]
  - BACK PAIN [None]
  - BLOOD CREATININE INCREASED [None]
  - BLOOD GLUCOSE INCREASED [None]
  - CEREBROVASCULAR ACCIDENT [None]
  - CHOLELITHIASIS [None]
  - DEPRESSION [None]
  - DRUG HYPERSENSITIVITY [None]
  - HEPATIC CYST [None]
  - HYPERTENSION [None]
  - MESENTERIC OCCLUSION [None]
  - MYALGIA [None]
  - MYOCARDIAL INFARCTION [None]
  - RENAL ARTERY STENOSIS [None]
  - RENAL CYST [None]
  - RENAL FAILURE [None]
  - SPINAL OSTEOARTHRITIS [None]
  - TEMPORAL ARTERITIS [None]
